FAERS Safety Report 8201596-4 (Version None)
Quarter: 2012Q1

REPORT INFORMATION
  Report Type: 
  Country: None (occurrence: None)
  Receive Date: 20120308
  Receipt Date: 20120224
  Transmission Date: 20120608
  Serious: Yes (Other)
  Sender: FDA-Public Use
  Company Number: DSM-2012-00248

PATIENT
  Age: 64 Year
  Sex: Female
  Weight: 88 kg

DRUGS (1)
  1. SEVIKAR HCT (TABLET) [Suspect]
     Indication: HYPERTENSION
     Dosage: 20/5 12/5 MG (1 IN 1 D), ORAL
     Route: 048
     Dates: start: 20111019, end: 20111101

REACTIONS (3)
  - HYPERHIDROSIS [None]
  - FLUSHING [None]
  - DECREASED APPETITE [None]
